FAERS Safety Report 5052858-3 (Version None)
Quarter: 2006Q3

REPORT INFORMATION
  Report Type: 
  Country: None (occurrence: None)
  Receive Date: 20060712
  Receipt Date: 20060629
  Transmission Date: 20061208
  Serious: Yes (Death, Hospitalization, Other)
  Sender: FDA-Public Use
  Company Number: HQWYE800912APR06

PATIENT
  Age: 70 Year
  Sex: Male
  Weight: 90 kg

DRUGS (1)
  1. MYLOTARG [Suspect]
     Indication: ACUTE MYELOID LEUKAEMIA
     Dosage: 18.9 MG 1X PER 1 DAY, INTRAVENOUS
     Route: 042
     Dates: start: 20051027, end: 20051027

REACTIONS (24)
  - ALANINE AMINOTRANSFERASE INCREASED [None]
  - ASCITES [None]
  - ASPARTATE AMINOTRANSFERASE INCREASED [None]
  - BLOOD ALKALINE PHOSPHATASE INCREASED [None]
  - BLOOD BILIRUBIN INCREASED [None]
  - BLOOD LACTATE DEHYDROGENASE [None]
  - BONE MARROW TRANSPLANT [None]
  - CHILLS [None]
  - DEHYDRATION [None]
  - DISEASE PROGRESSION [None]
  - DIZZINESS [None]
  - FEBRILE NEUTROPENIA [None]
  - GRAFT VERSUS HOST DISEASE [None]
  - HAEMODIALYSIS [None]
  - HYPERTENSION [None]
  - HYPOTENSION [None]
  - INFUSION RELATED REACTION [None]
  - LUNG CONSOLIDATION [None]
  - MYELOID LEUKAEMIA [None]
  - PULMONARY HAEMORRHAGE [None]
  - RENAL FAILURE ACUTE [None]
  - STAPHYLOCOCCAL SEPSIS [None]
  - THROMBOTIC THROMBOCYTOPENIC PURPURA [None]
  - WEIGHT INCREASED [None]
